FAERS Safety Report 19698449 (Version 1)
Quarter: 2021Q3

REPORT INFORMATION
  Report Type: Spontaneous
  Country: JP (occurrence: JP)
  Receive Date: 20210813
  Receipt Date: 20210813
  Transmission Date: 20211014
  Serious: Yes (Death, Hospitalization, Other)
  Sender: FDA-Public Use
  Company Number: JP-SLATE RUN PHARMACEUTICALS-21JP000629

PATIENT

DRUGS (7)
  1. ASPIRINE [Suspect]
     Active Substance: ASPIRIN
     Indication: PERICARDITIS
     Dosage: 750 MILLIGRAM, Q 8 HR
  2. CILOSTAZOL. [Concomitant]
     Active Substance: CILOSTAZOL
     Indication: PRODUCT USED FOR UNKNOWN INDICATION
  3. ASPIRINE [Suspect]
     Active Substance: ASPIRIN
     Indication: PERICARDIAL EFFUSION
     Dosage: UNK
  4. CILNIDIPINE [Concomitant]
     Active Substance: CILNIDIPINE
     Indication: PRODUCT USED FOR UNKNOWN INDICATION
  5. VALSARTAN. [Concomitant]
     Active Substance: VALSARTAN
     Indication: PRODUCT USED FOR UNKNOWN INDICATION
  6. CILOSTAZOL. [Suspect]
     Active Substance: CILOSTAZOL
     Indication: PRODUCT USED FOR UNKNOWN INDICATION
     Dosage: UNK
  7. RIVAROXABAN [Suspect]
     Active Substance: RIVAROXABAN
     Indication: ATRIAL FIBRILLATION
     Dosage: 15 MILLIGRAM, QD

REACTIONS (8)
  - Cardiac dysfunction [Fatal]
  - Pericardial effusion [Unknown]
  - Pericarditis [Unknown]
  - Pericardial haemorrhage [Unknown]
  - Myocarditis [Fatal]
  - Atrial fibrillation [Unknown]
  - Cardiac tamponade [Fatal]
  - Cardiogenic shock [Unknown]
